FAERS Safety Report 9164946 (Version 2)
Quarter: 2013Q1

REPORT INFORMATION
  Report Type: Spontaneous
  Country: US (occurrence: US)
  Receive Date: 20130315
  Receipt Date: 20130322
  Transmission Date: 20140127
  Serious: Yes (Hospitalization, Other)
  Sender: FDA-Public Use
  Company Number: US-PERRIGO-13US002364

PATIENT
  Age: 53 Year
  Sex: Female
  Weight: 72.56 kg

DRUGS (5)
  1. DIPHENHYDRAMINE HYDROCHLORIDE 25 MG 479 [Suspect]
     Indication: PRURITUS
     Dosage: 25 MG, SINGLE
     Route: 048
     Dates: start: 20130220, end: 20130220
  2. XANAX [Concomitant]
     Indication: ANXIETY
     Dosage: UNKNOWN, UNKNOWN
     Route: 048
  3. XANAX [Concomitant]
     Indication: POST-TRAUMATIC STRESS DISORDER
  4. ANTIBIOTICS [Concomitant]
     Indication: STAPHYLOCOCCAL INFECTION
     Dosage: UNKNOWN, BID
     Route: 042
     Dates: start: 20130204, end: 20130226
  5. KEPPRA [Concomitant]
     Indication: CONVULSION
     Dosage: UNKNOWN, UNKNOWN
     Route: 048
     Dates: start: 201210

REACTIONS (4)
  - Reaction to drug excipients [Recovered/Resolved]
  - Heart rate increased [Recovered/Resolved]
  - Dyspnoea [Recovered/Resolved]
  - Dizziness [Recovered/Resolved]
